FAERS Safety Report 10867028 (Version 4)
Quarter: 2015Q2

REPORT INFORMATION
  Report Type: Report from Study
  Country: DE (occurrence: DE)
  Receive Date: 20150225
  Receipt Date: 20150603
  Transmission Date: 20150821
  Serious: Yes (Other)
  Sender: FDA-Public Use
  Company Number: DE-JNJFOC-20150213667

PATIENT
  Age: 37 Year
  Sex: Female

DRUGS (1)
  1. SIMPONI [Suspect]
     Active Substance: GOLIMUMAB
     Indication: SPONDYLITIS
     Route: 058
     Dates: start: 20140407, end: 20140907

REACTIONS (3)
  - Rhinitis [Recovered/Resolved]
  - Respiratory tract infection [Recovering/Resolving]
  - Nasal septum deviation [Unknown]

NARRATIVE: CASE EVENT DATE: 20141007
